FAERS Safety Report 12682943 (Version 1)
Quarter: 2016Q3

REPORT INFORMATION
  Report Type: Spontaneous
  Country: US (occurrence: None)
  Receive Date: 20160824
  Receipt Date: 20160824
  Transmission Date: 20161109
  Serious: Yes (Other)
  Sender: FDA-Public Use
  Company Number: None

PATIENT
  Age: 62 Year
  Sex: Male
  Weight: 89.81 kg

DRUGS (3)
  1. ATENENOL [Concomitant]
  2. ESCITALOPRAM [Concomitant]
     Active Substance: ESCITALOPRAM OXALATE
  3. CARBI/LEVADOPA 25/100 MG [Suspect]
     Active Substance: CARBIDOPA\LEVODOPA
     Indication: PARKINSON^S DISEASE
     Dosage: FOUR TIMES A DAY TAKEN BY MOUTH
     Route: 048
     Dates: start: 20160717

REACTIONS (4)
  - Muscular weakness [None]
  - Condition aggravated [None]
  - Activities of daily living impaired [None]
  - Sensory loss [None]

NARRATIVE: CASE EVENT DATE: 20160721
